FAERS Safety Report 18017195 (Version 2)
Quarter: 2020Q3

REPORT INFORMATION
  Report Type: Spontaneous
  Country: NL (occurrence: NL)
  Receive Date: 20200713
  Receipt Date: 20200817
  Transmission Date: 20201103
  Serious: Yes (Other)
  Sender: FDA-Public Use
  Company Number: NVSC2020NL195280

PATIENT
  Age: 67 Year
  Sex: Female

DRUGS (2)
  1. ADALIMUMAB [Suspect]
     Active Substance: ADALIMUMAB
     Indication: ANKYLOSING SPONDYLITIS
     Dosage: 40 MG 2 WEEKS
     Route: 065
  2. PAMIDRONATE [Suspect]
     Active Substance: PAMIDRONATE DISODIUM
     Indication: ANKYLOSING SPONDYLITIS
     Dosage: 60 MG 12 WEEKS
     Route: 065

REACTIONS (2)
  - Product use in unapproved indication [Unknown]
  - Spinal fracture [Unknown]
